FAERS Safety Report 7756306-1 (Version None)
Quarter: 2011Q3

REPORT INFORMATION
  Report Type: 
  Country: None (occurrence: None)
  Receive Date: 20110916
  Receipt Date: 20110911
  Transmission Date: 20111222
  Serious: Yes (Hospitalization)
  Sender: FDA-Public Use
  Company Number: IL-BRISTOL-MYERS SQUIBB COMPANY-16052003

PATIENT
  Age: 50 Year

DRUGS (1)
  1. SPRYCEL [Suspect]

REACTIONS (2)
  - PLEURAL EFFUSION [None]
  - LUNG NEOPLASM MALIGNANT [None]
